FAERS Safety Report 23831800 (Version 1)
Quarter: 2024Q2

REPORT INFORMATION
  Report Type: Spontaneous
  Country: US (occurrence: None)
  Receive Date: 20240507
  Receipt Date: 20240507
  Transmission Date: 20240716
  Serious: Yes (Death)
  Sender: FDA-Public Use
  Company Number: None

PATIENT
  Age: 71 Year
  Sex: Female
  Weight: 68.4 kg

DRUGS (8)
  1. VIVITROL [Suspect]
     Active Substance: NALTREXONE
     Indication: Alcohol use disorder
     Dosage: OTHER FREQUENCY : EVERY 30 DAYS;?
     Route: 030
     Dates: start: 20240130, end: 20240229
  2. VIVITROL [Suspect]
     Active Substance: NALTREXONE
     Indication: Drug abuse
  3. amlodipine 10mg daily [Concomitant]
     Dates: start: 20240130, end: 20240229
  4. bupropion xl 300mg daily [Concomitant]
     Dates: start: 20240130, end: 20240229
  5. catapres-tts 0.2mg/24hr, weekly patch [Concomitant]
     Dates: start: 20240130, end: 20240229
  6. lisinopril 20mg daily [Concomitant]
     Dates: start: 20240130, end: 20240229
  7. sertraline 25mg daily [Concomitant]
     Dates: start: 20240130, end: 20240229
  8. risperidone 1mg- 2 tabs po qhs [Concomitant]
     Dates: start: 20240120, end: 20240229

REACTIONS (13)
  - Hyperhidrosis [None]
  - Dyspnoea [None]
  - Unresponsive to stimuli [None]
  - Moaning [None]
  - Pericardial rub [None]
  - Hypoxia [None]
  - Cerebral infarction [None]
  - Left-to-right cardiac shunt [None]
  - Lung opacity [None]
  - Lung consolidation [None]
  - Pulmonary oedema [None]
  - Pneumonia [None]
  - Embolism [None]

NARRATIVE: CASE EVENT DATE: 20240229
